FAERS Safety Report 15289351 (Version 1)
Quarter: 2018Q3

REPORT INFORMATION
  Report Type: Spontaneous
  Country: FR (occurrence: FR)
  Receive Date: 20180817
  Receipt Date: 20180817
  Transmission Date: 20181010
  Serious: Yes (Other)
  Sender: FDA-Public Use
  Company Number: FR-TEVA-2018-FR-941825

PATIENT
  Age: 45 Year
  Sex: Female

DRUGS (3)
  1. AMOXICILLINE TRIHYDRATEE [Suspect]
     Active Substance: AMOXICILLIN
     Indication: ABDOMINAL PAIN
     Route: 048
     Dates: start: 20180521, end: 20180602
  2. FLAGYL [Suspect]
     Active Substance: METRONIDAZOLE\METRONIDAZOLE HYDROCHLORIDE
     Indication: ABDOMINAL PAIN
     Dosage: 500 MILLIGRAM DAILY;
     Route: 048
     Dates: start: 20180526, end: 20180602
  3. OFLOXACINE [Suspect]
     Active Substance: OFLOXACIN
     Indication: ABDOMINAL PAIN
     Route: 048
     Dates: start: 20180525, end: 20180529

REACTIONS (1)
  - Hepatocellular injury [Recovered/Resolved]

NARRATIVE: CASE EVENT DATE: 20180528
